FAERS Safety Report 6150328-2 (Version None)
Quarter: 2009Q2

REPORT INFORMATION
  Report Type: 
  Country: None (occurrence: None)
  Receive Date: 20090408
  Receipt Date: 20090408
  Transmission Date: 20091009
  Serious: No
  Sender: FDA-Public Use
  Company Number: None

PATIENT
  Age: 58 Year
  Sex: Male
  Weight: 83.4 kg

DRUGS (1)
  1. LISINOPRIL [Suspect]
     Dosage: 5 MG EVERYDAY PO
     Route: 048
     Dates: start: 20090115, end: 20090327

REACTIONS (2)
  - ANAPHYLACTIC REACTION [None]
  - ANGIOEDEMA [None]
